FAERS Safety Report 9420056 (Version 2)
Quarter: 2013Q3

REPORT INFORMATION
  Report Type: Spontaneous
  Country: SG (occurrence: SG)
  Receive Date: 20130725
  Receipt Date: 20130909
  Transmission Date: 20140515
  Serious: Yes (Other)
  Sender: FDA-Public Use
  Company Number: SG-GILEAD-2013-0079932

PATIENT
  Age: 34 Year
  Sex: Female

DRUGS (1)
  1. VIREAD [Suspect]
     Indication: CHRONIC HEPATITIS B
     Dosage: 300 MG, QD
     Dates: start: 20130503, end: 20130510

REACTIONS (7)
  - Migraine [Recovered/Resolved]
  - Photophobia [Recovered/Resolved]
  - Fluid retention [Recovered/Resolved]
  - Abdominal distension [Recovered/Resolved]
  - Local swelling [Recovered/Resolved]
  - Nausea [Recovered/Resolved]
  - Vomiting [Recovered/Resolved]
